FAERS Safety Report 7743682-9 (Version None)
Quarter: 2011Q3

REPORT INFORMATION
  Report Type: 
  Country: None (occurrence: None)
  Receive Date: 20110909
  Receipt Date: 20110909
  Transmission Date: 20111222
  Serious: Yes (Hospitalization, Other)
  Sender: FDA-Public Use
  Company Number: None

PATIENT
  Sex: Female
  Weight: 62.5964 kg

DRUGS (1)
  1. MEDROXYPROGESTERONE [Suspect]
     Indication: DYSMENORRHOEA
     Dosage: 150 MG 1 ML. ONCE EVERY 3 MONTHS RIGHT ARM
     Dates: start: 20080220, end: 20101115

REACTIONS (7)
  - MOBILITY DECREASED [None]
  - AMNESIA [None]
  - MUSCULAR WEAKNESS [None]
  - INADEQUATE ANALGESIA [None]
  - OSTEONECROSIS [None]
  - EMBOLIA CUTIS MEDICAMENTOSA [None]
  - SCAR [None]
